FAERS Safety Report 12727636 (Version 1)
Quarter: 2016Q3

REPORT INFORMATION
  Report Type: Spontaneous
  Country: DE (occurrence: DE)
  Receive Date: 20160909
  Receipt Date: 20160909
  Transmission Date: 20161109
  Serious: Yes (Hospitalization)
  Sender: FDA-Public Use
  Company Number: DE-BIOGEN-2016BI00288572

PATIENT
  Age: 71 Year
  Sex: Female

DRUGS (1)
  1. AVONEX [Suspect]
     Active Substance: INTERFERON BETA-1A
     Indication: MULTIPLE SCLEROSIS
     Route: 030
     Dates: start: 20120101

REACTIONS (3)
  - Ileostomy [Recovered/Resolved with Sequelae]
  - Ileus [Recovered/Resolved]
  - Gastrointestinal carcinoma [Recovered/Resolved with Sequelae]

NARRATIVE: CASE EVENT DATE: 20151201
